FAERS Safety Report 4334963-X (Version None)
Quarter: 2004Q2

REPORT INFORMATION
  Report Type: 
  Country: None (occurrence: None)
  Receive Date: 20040408
  Receipt Date: 20040329
  Transmission Date: 20050107
  Serious: Yes (Hospitalization)
  Sender: FDA-Public Use
  Company Number: FR-BRISTOL-MYERS SQUIBB COMPANY-12543765

PATIENT
  Age: 17 Year
  Sex: Male
  Weight: 80 kg

DRUGS (13)
  1. AMIKLIN INJ [Suspect]
     Dates: start: 20040206, end: 20040217
  2. PERFALGAN IV [Suspect]
     Dosage: REPORTED DOSE: 1-3 GRAMS/DAY
     Route: 042
     Dates: start: 20040208
  3. FRAXIPARINE [Suspect]
     Route: 058
     Dates: start: 20040211
  4. CIFLOX [Suspect]
     Route: 048
     Dates: start: 20040214, end: 20040216
  5. FORTUM [Suspect]
     Dates: start: 20040213
  6. MOPRAL [Suspect]
     Dates: start: 20040206
  7. ZOVIRAX [Suspect]
     Dosage: REPORTED DOSE: 6-9 GRAMS/DAY
     Dates: start: 20040206, end: 20040211
  8. ROCEPHIN [Suspect]
     Dates: start: 20040206, end: 20040213
  9. DIPRIVAN [Suspect]
     Dates: start: 20040206, end: 20040207
  10. HYPNOVEL [Suspect]
     Dates: start: 20040206, end: 20040212
  11. SUFENTA [Suspect]
     Dates: start: 20040206, end: 20040212
  12. JOSACINE [Suspect]
     Dosage: REPORTED DOSE: 1-2 GRAMS/DAY, INTERRUPTED FROM 02/13/04 TO 02/17/04
     Route: 048
     Dates: start: 20040212
  13. TEGELINE [Concomitant]
     Dates: start: 20040213, end: 20040214

REACTIONS (1)
  - HEPATITIS [None]
